FAERS Safety Report 8312635-4 (Version None)
Quarter: 2012Q2

REPORT INFORMATION
  Report Type: 
  Country: None (occurrence: None)
  Receive Date: 20120424
  Receipt Date: 20120410
  Transmission Date: 20120825
  Serious: Yes (Other)
  Sender: FDA-Public Use
  Company Number: 1201-007

PATIENT
  Age: 87 Year
  Sex: Male

DRUGS (8)
  1. COUMADIN [Concomitant]
  2. NIPHDIPINE (NIFEDIPINE) [Concomitant]
  3. ZYMAXID (GATIFLOXACIN) [Concomitant]
  4. LIPITOR [Concomitant]
  5. PENCILLIN POTASSIUM (BENZYLPENICILLIN POTASSIUM) [Concomitant]
  6. NEXIUM [Concomitant]
  7. MULTIVITAMIN [Concomitant]
  8. EYLEA [Suspect]
     Indication: AGE-RELATED MACULAR DEGENERATION
     Dosage: ONCE, INTRAVITREAL
     Dates: start: 20111228, end: 20111228

REACTIONS (4)
  - SENSATION OF FOREIGN BODY [None]
  - CORNEAL ENDOTHELIITIS [None]
  - EYE PAIN [None]
  - CORNEAL DECOMPENSATION [None]
